FAERS Safety Report 21998995 (Version 2)
Quarter: 2023Q2

REPORT INFORMATION
  Report Type: Spontaneous
  Country: ES (occurrence: ES)
  Receive Date: 20230216
  Receipt Date: 20230522
  Transmission Date: 20230721
  Serious: Yes (Other)
  Sender: FDA-Public Use
  Company Number: None

PATIENT

DRUGS (4)
  1. UMECLIDINIUM BROMIDE\VILANTEROL TRIFENATATE [Suspect]
     Active Substance: UMECLIDINIUM BROMIDE\VILANTEROL TRIFENATATE
     Indication: Chronic obstructive pulmonary disease
     Dosage: 1 DF, QD (1 INHALATION DAILY) 55 MICROGRAMS/22 MICROGRAMS,1 X 30 DOSE
     Route: 055
     Dates: start: 20230112, end: 20230122
  2. ENALAPRIL [Concomitant]
     Active Substance: ENALAPRIL
     Indication: Hypertension
     Dosage: 5 MG, BID
     Route: 048
     Dates: start: 20191009
  3. TAMSULOSIN [Concomitant]
     Active Substance: TAMSULOSIN
     Indication: Benign prostatic hyperplasia
     Dosage: 0.4 MG, QD
     Route: 048
     Dates: start: 20211214, end: 20220221
  4. DUTASTERID + TAMSULOSIN [Concomitant]
     Indication: Benign prostatic hyperplasia
     Dosage: 1 DF, QD
     Route: 048
     Dates: start: 20220221

REACTIONS (1)
  - Libido decreased [Recovering/Resolving]

NARRATIVE: CASE EVENT DATE: 20230114
